FAERS Safety Report 21477435 (Version 1)
Quarter: 2022Q4

REPORT INFORMATION
  Report Type: Spontaneous
  Country: US (occurrence: US)
  Receive Date: 20221019
  Receipt Date: 20221019
  Transmission Date: 20230113
  Serious: Yes (Hospitalization, Other)
  Sender: FDA-Public Use
  Company Number: US-BEH-2022150787

PATIENT
  Sex: Male

DRUGS (2)
  1. IDELVION [Suspect]
     Active Substance: COAGULATION FACTOR IX RECOMBINANT HUMAN
     Dosage: UNK
     Route: 065
     Dates: start: 202210
  2. IDELVION [Suspect]
     Active Substance: COAGULATION FACTOR IX RECOMBINANT HUMAN
     Dosage: UNK
     Route: 065
     Dates: start: 202210

REACTIONS (5)
  - Dyspnoea [Unknown]
  - Nausea [Unknown]
  - Chest discomfort [Unknown]
  - Haemarthrosis [Unknown]
  - Fatigue [Unknown]

NARRATIVE: CASE EVENT DATE: 20221001
